FAERS Safety Report 15878355 (Version 1)
Quarter: 2019Q1

REPORT INFORMATION
  Report Type: Spontaneous
  Country: US (occurrence: US)
  Receive Date: 20190103
  Receipt Date: 20190103
  Transmission Date: 20190417
  Serious: Yes (Life-Threatening, Disabling, Other)
  Sender: FDA-Public Use
  Company Number: None

PATIENT
  Age: 52 Year
  Sex: Male
  Weight: 94.35 kg

DRUGS (1)
  1. METHADONE [Suspect]
     Active Substance: METHADONE HYDROCHLORIDE
     Indication: PAIN
     Dosage: ?          QUANTITY:1 PILL;?
     Route: 048
     Dates: start: 20181031, end: 20181128

REACTIONS (10)
  - Weight decreased [None]
  - Pain [None]
  - Thinking abnormal [None]
  - Chills [None]
  - Pyrexia [None]
  - Abdominal distension [None]
  - Withdrawal syndrome [None]
  - Product dispensing error [None]
  - Stress [None]
  - Headache [None]

NARRATIVE: CASE EVENT DATE: 20181031
